FAERS Safety Report 12653098 (Version 2)
Quarter: 2016Q3

REPORT INFORMATION
  Report Type: Spontaneous
  Country: JP (occurrence: JP)
  Receive Date: 20160815
  Receipt Date: 20160909
  Transmission Date: 20161109
  Serious: Yes (Hospitalization, Other)
  Sender: FDA-Public Use
  Company Number: JP-PFIZER INC-2016344501

PATIENT
  Age: 79 Year
  Sex: Male
  Weight: 84.3 kg

DRUGS (11)
  1. NEUROTROPIN [Concomitant]
     Active Substance: NEUROTROPIN
     Dosage: 2 DF, 2X/DAY
     Route: 048
  2. WYSTAL [Concomitant]
     Active Substance: CEFOPERAZONE SODIUM\SULBACTAM SODIUM
     Dosage: 1 G, 2X/DAY
     Route: 041
     Dates: start: 20160628, end: 20160706
  3. ZOLADEX LA [Concomitant]
     Active Substance: GOSERELIN ACETATE
     Dosage: 10.8 MG AN UNSPECIFIED INTERVAL DOSE
     Route: 042
     Dates: start: 2008
  4. LYRICA [Suspect]
     Active Substance: PREGABALIN
     Indication: NEURALGIA
     Dosage: 225 MG DAILY (MORNING 150MG AND EVENING 75MG)
     Route: 048
  5. FAMOTIDINE D [Concomitant]
     Active Substance: FAMOTIDINE
     Dosage: 10 MG, 2X/DAY
     Route: 048
  6. LOXOPROFEN [Concomitant]
     Active Substance: LOXOPROFEN
     Dosage: 60 MG, 3X/DAY
     Route: 048
  7. BICALUTAMIDE. [Concomitant]
     Active Substance: BICALUTAMIDE
     Dosage: 80 MG, 1X/DAY
     Route: 048
  8. EDIROL [Concomitant]
     Active Substance: ELDECALCITOL
     Dosage: 0.75 UG, 1X/DAY
     Route: 048
     Dates: start: 20150908
  9. AMLODIPINE [Concomitant]
     Active Substance: AMLODIPINE BESYLATE
     Dosage: 5 MG, 1X/DAY
     Route: 048
     Dates: start: 20130613, end: 20160628
  10. REBAMIPIDE [Concomitant]
     Active Substance: REBAMIPIDE
     Dosage: 100 MG, 3X/DAY
     Route: 048
  11. MAGMITT [Concomitant]
     Active Substance: MAGNESIUM OXIDE
     Dosage: 500 MG, 3X/DAY
     Route: 048
     Dates: end: 20160704

REACTIONS (18)
  - Pruritus [Unknown]
  - Aspartate aminotransferase increased [Unknown]
  - Haematocrit decreased [Unknown]
  - Intentional product use issue [Unknown]
  - Blood creatinine increased [Unknown]
  - Blood uric acid increased [Unknown]
  - High density lipoprotein decreased [Unknown]
  - Urinary tract infection [Unknown]
  - Rash [Unknown]
  - Blood creatine phosphokinase increased [Unknown]
  - Blood urea increased [Unknown]
  - Protein total decreased [Unknown]
  - Red blood cell count decreased [Unknown]
  - Lymphangitis [Unknown]
  - Cellulitis [Not Recovered/Not Resolved]
  - Decubitus ulcer [Unknown]
  - Haemoglobin decreased [Unknown]
  - White blood cell count increased [Unknown]

NARRATIVE: CASE EVENT DATE: 20160624
